FAERS Safety Report 7826148-7 (Version None)
Quarter: 2011Q4

REPORT INFORMATION
  Report Type: 
  Country: None (occurrence: None)
  Receive Date: 20111019
  Receipt Date: 20111017
  Transmission Date: 20120403
  Serious: Yes (Hospitalization)
  Sender: FDA-Public Use
  Company Number: US-BRISTOL-MYERS SQUIBB COMPANY-14509640

PATIENT
  Age: 63 Year
  Sex: Male
  Weight: 73 kg

DRUGS (1)
  1. ERBITUX [Suspect]
     Indication: PHARYNGEAL CANCER STAGE UNSPECIFIED
     Dosage: 1ST DOSE-8DEC08; DELAYED FOR15DAYS
     Route: 042
     Dates: start: 20090112, end: 20090112

REACTIONS (7)
  - LYMPHOPENIA [None]
  - STOMATITIS [None]
  - DYSPHAGIA [None]
  - RADIATION SKIN INJURY [None]
  - FATIGUE [None]
  - EXFOLIATIVE RASH [None]
  - ORAL PAIN [None]
